FAERS Safety Report 13175785 (Version 1)
Quarter: 2017Q1

REPORT INFORMATION
  Report Type: Spontaneous
  Country: FR (occurrence: FR)
  Receive Date: 20170201
  Receipt Date: 20170201
  Transmission Date: 20170428
  Serious: Yes (Hospitalization)
  Sender: FDA-Public Use
  Company Number: FR-JNJFOC-20170126026

PATIENT
  Age: 21 Year
  Sex: Female
  Weight: 53 kg

DRUGS (1)
  1. REMICADE [Suspect]
     Active Substance: INFLIXIMAB
     Indication: COLITIS ULCERATIVE
     Dosage: 0.0893 MG/KG
     Route: 042
     Dates: end: 20161125

REACTIONS (2)
  - Facial paralysis [Not Recovered/Not Resolved]
  - Central nervous system inflammation [Unknown]

NARRATIVE: CASE EVENT DATE: 201612
